FAERS Safety Report 9192030 (Version 1)
Quarter: 2013Q1

REPORT INFORMATION
  Report Type: Spontaneous
  Country: US (occurrence: None)
  Receive Date: 20130326
  Receipt Date: 20130326
  Transmission Date: 20140127
  Serious: Yes (Hospitalization)
  Sender: FDA-Public Use
  Company Number: None

PATIENT
  Age: 77 Year
  Sex: Male
  Weight: 74.3 kg

DRUGS (1)
  1. DENOSUMAB [Suspect]
     Indication: OSTEOPOROSIS
     Dates: start: 20130226, end: 20130306

REACTIONS (2)
  - Bradycardia [None]
  - Hypocalcaemia [None]
